FAERS Safety Report 15820804 (Version 3)
Quarter: 2019Q1

REPORT INFORMATION
  Report Type: Spontaneous
  Country: US (occurrence: US)
  Receive Date: 20190114
  Receipt Date: 20190308
  Transmission Date: 20190417
  Serious: Yes (Hospitalization, Other)
  Sender: FDA-Public Use
  Company Number: US-RADIUS HEALTH, INC.-2018US003108

PATIENT
  Age: 69 Year
  Sex: Female

DRUGS (2)
  1. TYMLOS [Suspect]
     Active Substance: ABALOPARATIDE
     Indication: OSTEOPOROSIS POSTMENOPAUSAL
     Dosage: 80 MCG, ONCE A DAY
     Route: 065
     Dates: start: 20181214
  2. FOSAMAX [Concomitant]
     Active Substance: ALENDRONATE SODIUM
     Indication: PRODUCT USED FOR UNKNOWN INDICATION

REACTIONS (13)
  - Underdose [Unknown]
  - Arthralgia [Unknown]
  - Pancreatitis [Unknown]
  - Pelvic pain [Unknown]
  - Back pain [Unknown]
  - Product use issue [Unknown]
  - Proctitis [Unknown]
  - Abdominal distension [Unknown]
  - Headache [Unknown]
  - Tooth disorder [Unknown]
  - Intestinal obstruction [Unknown]
  - Wrong technique in product usage process [Recovered/Resolved]
  - Product dose omission [Unknown]

NARRATIVE: CASE EVENT DATE: 20181213
